FAERS Safety Report 8296680-3 (Version None)
Quarter: 2012Q2

REPORT INFORMATION
  Report Type: 
  Country: None (occurrence: None)
  Receive Date: 20120418
  Receipt Date: 20120410
  Transmission Date: 20120825
  Serious: Yes (Death)
  Sender: FDA-Public Use
  Company Number: PT-BAXTER-2012BAX002595

PATIENT
  Sex: Male

DRUGS (6)
  1. EXTRANEAL [Suspect]
     Route: 033
     Dates: start: 20120101, end: 20120409
  2. PHYSIONEAL 40 GLUCOSE 2,27% P/V / 22,7 MG/ML [Suspect]
     Route: 033
     Dates: end: 20120409
  3. EXTRANEAL [Suspect]
     Route: 033
     Dates: start: 20120101, end: 20120409
  4. PHYSIONEAL 40 GLUCOSE 2,27% P/V / 22,7 MG/ML [Suspect]
     Route: 033
     Dates: start: 20120116
  5. PHYSIONEAL 40 GLUCOSE 1,36% P/V / 13,6 MG/ML [Suspect]
     Route: 033
     Dates: end: 20120409
  6. PHYSIONEAL 40 GLUCOSE 1,36% P/V / 13,6 MG/ML [Suspect]
     Route: 033
     Dates: start: 20120116

REACTIONS (1)
  - DEATH [None]
